FAERS Safety Report 13875872 (Version 1)
Quarter: 2017Q3

REPORT INFORMATION
  Report Type: Spontaneous
  Country: US (occurrence: None)
  Receive Date: 20170811
  Receipt Date: 20170811
  Transmission Date: 20171127
  Serious: Yes (Hospitalization)
  Sender: FDA-Public Use
  Company Number: 2630-50

PATIENT
  Age: 49 Year
  Sex: Female
  Weight: 72.57 kg

DRUGS (4)
  1. LYMESTAT (HOMEOPATHIC) [Suspect]
     Active Substance: HOMEOPATHICS
     Indication: HUMAN EHRLICHIOSIS
     Dosage: ?          OTHER FREQUENCY:5 TIMES/DAY;?
     Route: 048
     Dates: start: 20170701, end: 20170710
  2. SOVEREIGN SILVER (HOMEOPATHIC) [Suspect]
     Active Substance: HOMEOPATHICS
     Indication: LYME DISEASE
     Dosage: ?          OTHER DOSE:1 TSP.;OTHER FREQUENCY:7 TIMES/DAY;?
     Route: 048
     Dates: start: 20170701, end: 20170710
  3. SOVEREIGN SILVER (HOMEOPATHIC) [Suspect]
     Active Substance: HOMEOPATHICS
     Indication: HUMAN EHRLICHIOSIS
     Dosage: ?          OTHER DOSE:1 TSP.;OTHER FREQUENCY:7 TIMES/DAY;?
     Route: 048
     Dates: start: 20170701, end: 20170710
  4. LYMESTAT (HOMEOPATHIC) [Suspect]
     Active Substance: HOMEOPATHICS
     Indication: LYME DISEASE
     Dosage: ?          OTHER FREQUENCY:5 TIMES/DAY;?
     Route: 048
     Dates: start: 20170701, end: 20170710

REACTIONS (6)
  - White blood cell count decreased [None]
  - Hepatic enzyme increased [None]
  - Nausea [None]
  - Headache [None]
  - Vomiting [None]
  - Pyrexia [None]

NARRATIVE: CASE EVENT DATE: 20170714
